FAERS Safety Report 6388106-1 (Version None)
Quarter: 2009Q3

REPORT INFORMATION
  Report Type: 
  Country: None (occurrence: None)
  Receive Date: 20090930
  Receipt Date: 20090916
  Transmission Date: 20100115
  Serious: Yes (Other)
  Sender: FDA-Public Use
  Company Number: 8052482

PATIENT
  Age: 55 Year
  Sex: Female

DRUGS (2)
  1. KEPPRA [Suspect]
     Dosage: 1000 MG 2/D
     Dates: end: 20090501
  2. LAMOTRIGINE [Suspect]
     Dosage: 200 MG 2/D

REACTIONS (4)
  - COMPLEX PARTIAL SEIZURES [None]
  - CONVULSION [None]
  - DEPRESSION [None]
  - GASTRITIS [None]
